FAERS Safety Report 10574718 (Version 1)
Quarter: 2014Q4

REPORT INFORMATION
  Report Type: Spontaneous
  Country: US (occurrence: US)
  Receive Date: 20141110
  Receipt Date: 20141110
  Transmission Date: 20150529
  Serious: No
  Sender: FDA-Public Use
  Company Number: US-009507513-1410USA016539

PATIENT
  Age: 33 Year
  Sex: Male

DRUGS (1)
  1. PROVENTIL [Suspect]
     Active Substance: ALBUTEROL
     Dosage: TWO PUFFS EVERY EVERY SIX HOURS AS NEEDED
     Route: 055
     Dates: start: 201301

REACTIONS (2)
  - Product quality issue [Unknown]
  - Adverse event [Unknown]

NARRATIVE: CASE EVENT DATE: 201410
